FAERS Safety Report 23343534 (Version 2)
Quarter: 2023Q4

REPORT INFORMATION
  Report Type: Spontaneous
  Country: MY (occurrence: MY)
  Receive Date: 20231227
  Receipt Date: 20231228
  Transmission Date: 20240110
  Serious: Yes (Death, Other)
  Sender: FDA-Public Use
  Company Number: MY-MYLANLABS-2023M1137612

PATIENT
  Age: 41 Year
  Sex: Female

DRUGS (12)
  1. GEMCITABINE [Suspect]
     Active Substance: GEMCITABINE
     Indication: Squamous cell breast carcinoma
     Dosage: UNK
     Route: 065
  2. GEMCITABINE [Suspect]
     Active Substance: GEMCITABINE
     Indication: Hormone receptor positive breast cancer
  3. GEMCITABINE [Suspect]
     Active Substance: GEMCITABINE
     Indication: HER2 protein overexpression
  4. GEMCITABINE [Suspect]
     Active Substance: GEMCITABINE
     Indication: Progesterone receptor assay negative
  5. CISPLATIN [Suspect]
     Active Substance: CISPLATIN
     Indication: Squamous cell breast carcinoma
     Dosage: UNK
     Route: 065
  6. CISPLATIN [Suspect]
     Active Substance: CISPLATIN
     Indication: Hormone receptor positive breast cancer
  7. CISPLATIN [Suspect]
     Active Substance: CISPLATIN
     Indication: HER2 protein overexpression
  8. CISPLATIN [Suspect]
     Active Substance: CISPLATIN
     Indication: Progesterone receptor assay negative
  9. TAMOXIFEN [Suspect]
     Active Substance: TAMOXIFEN
     Indication: Squamous cell breast carcinoma
     Dosage: UNK
     Route: 048
  10. TAMOXIFEN [Suspect]
     Active Substance: TAMOXIFEN
     Indication: Hormone receptor positive breast cancer
  11. TAMOXIFEN [Suspect]
     Active Substance: TAMOXIFEN
     Indication: HER2 protein overexpression
  12. TAMOXIFEN [Suspect]
     Active Substance: TAMOXIFEN
     Indication: Progesterone receptor assay negative

REACTIONS (2)
  - Drug ineffective [Fatal]
  - Disease progression [Unknown]
